FAERS Safety Report 8847205 (Version 1)
Quarter: 2012Q4

REPORT INFORMATION
  Report Type: 
  Country: US (occurrence: US)
  Receive Date: 20121018
  Receipt Date: 20121018
  Transmission Date: 20130627
  Serious: No
  Sender: FDA-Public Use
  Company Number: US-TEVA-364405USA

PATIENT
  Sex: Female
  Weight: 47.67 kg

DRUGS (1)
  1. PROAIR HFA [Suspect]
     Indication: DYSPNOEA
     Dosage: varies, PRN
     Dates: start: 20121010

REACTIONS (2)
  - Abdominal pain [Not Recovered/Not Resolved]
  - Nausea [Not Recovered/Not Resolved]
